FAERS Safety Report 8798570 (Version 1)
Quarter: 2012Q4

REPORT INFORMATION
  Report Type: Report from Study
  Country: GB (occurrence: GB)
  Receive Date: 20120917
  Receipt Date: 20120917
  Transmission Date: 20130627
  Serious: Yes (Other)
  Sender: FDA-Public Use
  Company Number: GB-PFIZER INC-2012224260

PATIENT
  Sex: Male

DRUGS (2)
  1. CARBOPLATIN [Suspect]
     Indication: SMALL CELL LUNG CANCER EXTENSIVE STAGE
     Dosage: AUC 5, on Day 1, 21-day cycle
     Route: 042
  2. IRINOTECAN HCL [Suspect]
     Indication: SMALL CELL LUNG CANCER EXTENSIVE STAGE
     Dosage: 70 mg/m2, on Days 1 and 8, 21-day cycle
     Route: 042

REACTIONS (3)
  - Thrombosis [Unknown]
  - Neutropenic infection [Unknown]
  - Diarrhoea [Unknown]
